FAERS Safety Report 7626047-X (Version None)
Quarter: 2011Q3

REPORT INFORMATION
  Report Type: 
  Country: None (occurrence: None)
  Receive Date: 20110713
  Receipt Date: 20110629
  Transmission Date: 20111222
  Serious: Yes (Other)
  Sender: FDA-Public Use
  Company Number: HA11-155-AE

PATIENT
  Age: 83 Year
  Sex: Male
  Weight: 48 kg

DRUGS (15)
  1. ASPIRIN [Concomitant]
  2. TYLENOL-500 [Concomitant]
  3. FENOFIBRATE [Concomitant]
  4. RANITIDINE [Concomitant]
  5. ZETIA [Concomitant]
  6. CRESTOR [Concomitant]
  7. ENALAPRIL MALEATE [Concomitant]
  8. FUROSEMIDE [Concomitant]
  9. SULFAMETHOXAZOLE AND TRIMETHOPRIM [Suspect]
     Indication: ESCHERICHIA INFECTION
     Dosage: 1 TABLET, BID, ORAL
     Route: 048
     Dates: start: 20110622, end: 20110629
  10. ATENOLOL [Concomitant]
  11. LORATADINE [Concomitant]
  12. ALLOPURINOL [Concomitant]
  13. PLAVIX [Concomitant]
  14. GUAFENSIN [Concomitant]
  15. NITROGLYCERIN [Concomitant]

REACTIONS (1)
  - BLOOD PRESSURE DECREASED [None]
